FAERS Safety Report 5584290-8 (Version None)
Quarter: 2008Q1

REPORT INFORMATION
  Report Type: 
  Country: None (occurrence: None)
  Receive Date: 20080108
  Receipt Date: 20071231
  Transmission Date: 20080703
  Serious: Yes (Death)
  Sender: FDA-Public Use
  Company Number: B0501703A

PATIENT
  Age: 72 Year
  Sex: Male

DRUGS (8)
  1. DEROXAT [Suspect]
     Indication: DRUG USE FOR UNKNOWN INDICATION
     Route: 048
  2. ADVIL LIQUI-GELS [Suspect]
     Route: 048
     Dates: start: 20071203, end: 20071205
  3. IZILOX [Suspect]
     Indication: INFECTION
     Route: 048
     Dates: start: 20071203, end: 20071205
  4. DOLIPRANE [Suspect]
     Route: 048
     Dates: start: 20071203, end: 20071205
  5. LAROXYL [Suspect]
     Indication: DRUG USE FOR UNKNOWN INDICATION
     Route: 065
  6. LYSANXIA [Suspect]
     Indication: DRUG USE FOR UNKNOWN INDICATION
     Route: 065
  7. LYRICA [Suspect]
     Indication: DRUG USE FOR UNKNOWN INDICATION
     Route: 065
  8. AMOXICILLIN [Concomitant]
     Route: 065
     Dates: start: 20071129, end: 20071203

REACTIONS (4)
  - BRONCHITIS [None]
  - INFECTION [None]
  - PYREXIA [None]
  - SUDDEN DEATH [None]
